FAERS Safety Report 6604156-1 (Version None)
Quarter: 2010Q1

REPORT INFORMATION
  Report Type: 
  Country: None (occurrence: None)
  Receive Date: 20100226
  Receipt Date: 20090604
  Transmission Date: 20100710
  Serious: No
  Sender: FDA-Public Use
  Company Number: A0790422A

PATIENT
  Sex: Female

DRUGS (1)
  1. LAMICTAL CD [Suspect]
     Indication: DRUG USE FOR UNKNOWN INDICATION
     Dosage: 150MG UNKNOWN
     Route: 048

REACTIONS (5)
  - DRUG DISPENSING ERROR [None]
  - EXPIRED DRUG ADMINISTERED [None]
  - FEELINGS OF WORTHLESSNESS [None]
  - PRURITUS GENERALISED [None]
  - SOMNOLENCE [None]
